FAERS Safety Report 5006345-9 (Version None)
Quarter: 2006Q2

REPORT INFORMATION
  Report Type: 
  Country: None (occurrence: None)
  Receive Date: 20060519
  Receipt Date: 20060509
  Transmission Date: 20061013
  Serious: Yes (Hospitalization, Other)
  Sender: FDA-Public Use
  Company Number: AU-JNJFOC-20060401769

PATIENT
  Sex: Female

DRUGS (6)
  1. RISPERDAL [Suspect]
     Dosage: 1 MG IN MORNING AND 2 MG AT NIGHT
  2. RISPERDAL [Suspect]
  3. RISPERDAL [Suspect]
  4. RISPERDAL [Suspect]
     Indication: SCHIZOPHRENIA
  5. SERTRALINE [Concomitant]
     Indication: DEPRESSION
  6. METFORMIN [Concomitant]

REACTIONS (2)
  - HAIRY CELL LEUKAEMIA [None]
  - PANCYTOPENIA [None]
